FAERS Safety Report 7608443-X (Version None)
Quarter: 2011Q3

REPORT INFORMATION
  Report Type: 
  Country: None (occurrence: None)
  Receive Date: 20110713
  Receipt Date: 20110713
  Transmission Date: 20111222
  Serious: Yes (Hospitalization)
  Sender: FDA-Public Use
  Company Number: None

PATIENT
  Age: 77 Year
  Sex: Female
  Weight: 55.3388 kg

DRUGS (12)
  1. KEPPRA [Concomitant]
  2. ALBUTEROL INHALER [Concomitant]
  3. HYDROMORPHONE HCL [Concomitant]
  4. LIDOCAINE HCL VISCOUS [Concomitant]
  5. LOPERAMIDE HCL [Concomitant]
  6. ERLOTINIB HYDROCHLORIDE [Suspect]
     Indication: NON-SMALL CELL LUNG CANCER
     Dosage: 150 MG PO QD
     Route: 048
     Dates: start: 20100625, end: 20110322
  7. LORAZEPAM [Concomitant]
  8. PULMICORT FLEXHALER [Concomitant]
  9. PREDNISONE [Concomitant]
  10. SIMETHICONE [Concomitant]
  11. EPIPEN (EPINEPHRINE AUTOINJECTOR) [Concomitant]
  12. CALCITONIN SALMON [Concomitant]

REACTIONS (2)
  - FAILURE TO THRIVE [None]
  - PAIN [None]
